FAERS Safety Report 7102820-1 (Version None)
Quarter: 2010Q4

REPORT INFORMATION
  Report Type: 
  Country: None (occurrence: None)
  Receive Date: 20101109
  Receipt Date: 20101101
  Transmission Date: 20110411
  Serious: Yes (Hospitalization)
  Sender: FDA-Public Use
  Company Number: 2010110005

PATIENT
  Age: 58 Year
  Sex: Male

DRUGS (4)
  1. FELBATOL [Suspect]
     Indication: CONVULSION
     Dosage: 3600 MG (1200 MG, 3 IN 1 D), ORAL
     Route: 048
     Dates: start: 20100801, end: 20101030
  2. CITALOPRAM HYDROBROMIDE [Concomitant]
  3. DEPAKOTE [Concomitant]
  4. BETHANECHOL (BETHANECHOL) [Concomitant]

REACTIONS (4)
  - DEHYDRATION [None]
  - INCORRECT DOSE ADMINISTERED [None]
  - NAUSEA [None]
  - VOMITING [None]
